FAERS Safety Report 4365958-8 (Version None)
Quarter: 2004Q2

REPORT INFORMATION
  Report Type: 
  Country: None (occurrence: None)
  Receive Date: 20040520
  Receipt Date: 20040506
  Transmission Date: 20050107
  Serious: Yes (Hospitalization)
  Sender: FDA-Public Use
  Company Number: 2004IM000637

PATIENT
  Age: 61 Year
  Sex: Male

DRUGS (2)
  1. ADVAFERON (A643_INTERFERON ALFACON-1) [Suspect]
     Indication: HEPATITIS C
     Dosage: 12 MU; QD; SUBCUTANEOUS
     Route: 058
     Dates: start: 20040415
  2. RIBAVIRIN [Suspect]
     Indication: HEPATITIS C
     Dosage: 400 MG; BID; SUBCUTANEOUS
     Route: 058
     Dates: start: 20040415

REACTIONS (2)
  - HAEMOPTYSIS [None]
  - PULMONARY MASS [None]
